FAERS Safety Report 11754425 (Version 2)
Quarter: 2015Q4

REPORT INFORMATION
  Report Type: Spontaneous
  Country: DE (occurrence: DE)
  Receive Date: 20151119
  Receipt Date: 20151221
  Transmission Date: 20160304
  Serious: Yes (Life-Threatening, Hospitalization, Other)
  Sender: FDA-Public Use
  Company Number: DE-IGSA-GTI003670

PATIENT
  Age: 17 Year
  Sex: Male
  Weight: 85 kg

DRUGS (22)
  1. OMEPRAZOLE. [Concomitant]
     Active Substance: OMEPRAZOLE
     Route: 042
     Dates: start: 20150818, end: 20150821
  2. PIPERACILLIN/TAZOBACTAM [Concomitant]
     Active Substance: PIPERACILLIN SODIUM\TAZOBACTAM SODIUM
     Route: 042
     Dates: start: 20150818, end: 20150818
  3. PAEDIAFUSIN II [Concomitant]
     Route: 042
     Dates: start: 20150818, end: 20150820
  4. PLATELETS [Concomitant]
     Active Substance: HUMAN PLATELET, ALLOGENIC
  5. HEPARIN [Concomitant]
     Active Substance: HEPARIN SODIUM
     Route: 042
     Dates: start: 20150818, end: 20150821
  6. VANCOMYCIN [Concomitant]
     Active Substance: VANCOMYCIN
     Route: 042
     Dates: start: 20150818, end: 20150821
  7. AMPHOTERICIN B LIPID COMPLEX [Concomitant]
     Active Substance: AMPHOTERICIN B
     Route: 042
     Dates: start: 20150818, end: 20150821
  8. GAMUNEX [Suspect]
     Active Substance: HUMAN IMMUNOGLOBULIN G
     Indication: HYPOGAMMAGLOBULINAEMIA
     Route: 042
     Dates: start: 20150818, end: 20150818
  9. LENOGRASTIM [Concomitant]
     Active Substance: LENOGRASTIM
     Route: 042
     Dates: start: 20150818, end: 20150821
  10. GRANULOCYTE COLONY STIMULATING FACTOR [Concomitant]
     Active Substance: GRANULOCYTE COLONY-STIMULATING FACTOR NOS
  11. ESKETAMINE [Concomitant]
     Active Substance: ESKETAMINE
     Route: 042
     Dates: start: 20150818, end: 20150818
  12. MEROPENEM. [Concomitant]
     Active Substance: MEROPENEM
     Route: 042
     Dates: start: 20150818, end: 20150821
  13. NOREPINEPHRINE [Concomitant]
     Active Substance: NOREPINEPHRINE\NOREPINEPHRINE BITARTRATE
     Route: 042
     Dates: start: 20150818, end: 20150820
  14. ANTIBIOTICS [Concomitant]
     Active Substance: UNSPECIFIED INGREDIENT
     Route: 042
  15. TRAMADOL. [Concomitant]
     Active Substance: TRAMADOL
     Route: 042
     Dates: start: 20150818, end: 20150821
  16. HYDROCORTISONE. [Concomitant]
     Active Substance: HYDROCORTISONE
     Route: 042
     Dates: start: 20150818, end: 20150821
  17. MIDAZOLAM [Concomitant]
     Active Substance: MIDAZOLAM\MIDAZOLAM HYDROCHLORIDE
     Route: 042
     Dates: start: 20150818, end: 20150818
  18. FRESH FROZEN PLASMA [Concomitant]
     Active Substance: HUMAN PLASMA
  19. PIRITRAMIDE [Concomitant]
     Active Substance: PIRITRAMIDE
     Route: 042
     Dates: start: 20150818, end: 20150818
  20. FIDAXOMICIN [Concomitant]
     Active Substance: FIDAXOMICIN
  21. CIPROFLOXACIN. [Concomitant]
     Active Substance: CIPROFLOXACIN
     Route: 042
     Dates: start: 20150818, end: 20150821
  22. SODIUM CHLORIDE. [Concomitant]
     Active Substance: SODIUM CHLORIDE
     Route: 042
     Dates: start: 20150818, end: 20150821

REACTIONS (3)
  - Cardiovascular insufficiency [None]
  - Hypersensitivity [Recovered/Resolved]
  - Shock symptom [Recovered/Resolved]

NARRATIVE: CASE EVENT DATE: 20150818
